FAERS Safety Report 4828755-2 (Version None)
Quarter: 2005Q4

REPORT INFORMATION
  Report Type: 
  Country: None (occurrence: None)
  Receive Date: 20051115
  Receipt Date: 20050706
  Transmission Date: 20060501
  Serious: Yes (Life-Threatening, Hospitalization)
  Sender: FDA-Public Use
  Company Number: FR-MERCK-0507FRA00027

PATIENT
  Age: 34 Year
  Sex: Female

DRUGS (6)
  1. EMEND [Suspect]
     Indication: PROPHYLAXIS OF NAUSEA AND VOMITING
     Route: 048
     Dates: start: 20050501, end: 20050501
  2. EMEND [Suspect]
     Route: 048
     Dates: start: 20050501, end: 20050501
  3. DOXORUBICIN [Concomitant]
     Indication: SARCOMA
     Route: 042
     Dates: start: 20050501, end: 20050501
  4. IFOSFAMIDE [Concomitant]
     Indication: SARCOMA
     Route: 042
     Dates: start: 20050501, end: 20050501
  5. DACARBAZINE [Concomitant]
     Indication: SARCOMA
     Route: 042
     Dates: start: 20050501, end: 20050501
  6. METHYLPREDNISOLONE [Concomitant]
     Indication: SARCOMA
     Route: 042
     Dates: start: 20050501, end: 20050501

REACTIONS (2)
  - HEPATITIS TOXIC [None]
  - LIVER TRANSPLANT [None]
